FAERS Safety Report 19256742 (Version 1)
Quarter: 2021Q2

REPORT INFORMATION
  Report Type: Report from Study
  Country: None (occurrence: BR)
  Receive Date: 20210514
  Receipt Date: 20210514
  Transmission Date: 20210717
  Serious: Yes (Hospitalization)
  Sender: FDA-Public Use
  Company Number: BR-ABBVIE-21K-020-3900785-00

PATIENT
  Age: 45 Year
  Sex: Female
  Weight: 62 kg

DRUGS (4)
  1. HUMIRA [Suspect]
     Active Substance: ADALIMUMAB
     Indication: CROHN^S DISEASE
     Dosage: LOADING DOSE ? WEEK 00
     Route: 058
     Dates: start: 20180507
  2. HUMIRA [Suspect]
     Active Substance: ADALIMUMAB
     Route: 058
  3. HUMIRA [Suspect]
     Active Substance: ADALIMUMAB
     Route: 058
  4. CYMBI [Concomitant]
     Indication: ANXIETY

REACTIONS (13)
  - Back pain [Recovered/Resolved]
  - Urinary tract infection [Recovered/Resolved]
  - Abdominal pain [Recovering/Resolving]
  - Diarrhoea [Recovered/Resolved]
  - Inflammation [Recovering/Resolving]
  - Inflammation [Recovering/Resolving]
  - Anaemia [Recovering/Resolving]
  - Haematochezia [Recovered/Resolved]
  - Urethral dilatation [Recovered/Resolved]
  - Enteritis [Recovering/Resolving]
  - Onychoclasis [Recovering/Resolving]
  - Weight increased [Not Recovered/Not Resolved]
  - Alopecia [Recovering/Resolving]

NARRATIVE: CASE EVENT DATE: 202007
